FAERS Safety Report 6026603-9 (Version None)
Quarter: 2008Q4

REPORT INFORMATION
  Report Type: 
  Country: None (occurrence: None)
  Receive Date: 20081231
  Receipt Date: 20081219
  Transmission Date: 20090506
  Serious: Yes (Hospitalization, Other)
  Sender: FDA-Public Use
  Company Number: GXKR2008US12167

PATIENT
  Age: 49 Year
  Sex: Female

DRUGS (5)
  1. PREDNISONE [Suspect]
     Indication: IMMUNOSUPPRESSANT DRUG THERAPY
     Dosage: 5 MG, QD
  2. PREDNISONE [Suspect]
     Indication: RENAL TRANSPLANT
     Dosage: 5 MG, QD
  3. MYCOPHENOLATE MOFETIL [Suspect]
     Indication: IMMUNOSUPPRESSANT DRUG THERAPY
     Dosage: 500 MG, TID
  4. MYCOPHENOLATE MOFETIL [Suspect]
     Indication: RENAL TRANSPLANT
     Dosage: 500 MG, TID
  5. TACROLIMUS [Suspect]
     Indication: IMMUNOSUPPRESSANT DRUG THERAPY
     Dosage: 0.5 MG, BID; 1.5 MG, BID

REACTIONS (6)
  - ANAEMIA [None]
  - ENDOMETRIAL CANCER [None]
  - FALLOPIAN TUBE CANCER METASTATIC [None]
  - MALIGNANT NEOPLASM PROGRESSION [None]
  - METASTASES TO ABDOMINAL WALL [None]
  - OVARIAN CANCER METASTATIC [None]
